FAERS Safety Report 18975420 (Version 1)
Quarter: 2021Q1

REPORT INFORMATION
  Report Type: Spontaneous
  Country: US (occurrence: US)
  Receive Date: 20210306
  Receipt Date: 20210306
  Transmission Date: 20210420
  Serious: Yes (Other)
  Sender: FDA-Public Use
  Company Number: US-ROCHE-2781491

PATIENT
  Sex: Male

DRUGS (3)
  1. COREG [Concomitant]
     Active Substance: CARVEDILOL
  2. ALECENSA [Suspect]
     Active Substance: ALECTINIB HYDROCHLORIDE
     Indication: NON-SMALL CELL LUNG CANCER
     Route: 065
  3. IRON [Concomitant]
     Active Substance: IRON

REACTIONS (6)
  - Anaemia [Unknown]
  - Heart rate decreased [Unknown]
  - Lung cancer metastatic [Unknown]
  - Heart rate increased [Unknown]
  - Hypotension [Unknown]
  - Fatigue [Unknown]
